FAERS Safety Report 5656839-8 (Version None)
Quarter: 2008Q1

REPORT INFORMATION
  Report Type: 
  Country: None (occurrence: None)
  Receive Date: 20080310
  Receipt Date: 20080304
  Transmission Date: 20080703
  Serious: Yes (Other)
  Sender: FDA-Public Use
  Company Number: DE-WYE-H02928008

PATIENT
  Sex: Female

DRUGS (3)
  1. RAPAMUNE [Suspect]
     Indication: PROPHYLAXIS AGAINST TRANSPLANT REJECTION
     Route: 048
     Dates: start: 20080124, end: 20080213
  2. VALCYTE [Concomitant]
     Dosage: UNKNOWN
     Route: 065
     Dates: end: 20080213
  3. KEPINOL [Concomitant]
     Dosage: UNKNOWN
     Route: 065
     Dates: end: 20080213

REACTIONS (1)
  - RENAL FAILURE ACUTE [None]
